FAERS Safety Report 9785642 (Version 5)
Quarter: 2014Q2

REPORT INFORMATION
  Report Type: Report from Study
  Country: CZ (occurrence: CZ)
  Receive Date: 20131227
  Receipt Date: 20140627
  Transmission Date: 20141212
  Serious: Yes (Death)
  Sender: FDA-Public Use
  Company Number: CZ-ROCHE-1308267

PATIENT
  Age: 70 Year
  Sex: Female
  Weight: 55 kg

DRUGS (3)
  1. VEMURAFENIB [Suspect]
     Indication: MALIGNANT MELANOMA
     Dosage: LAST DOSE PRIOR TO THE EVENT ASYMPTOMATIC REDUCTION OF LVEF: 17/OCT/2013 AND LAST DOSE PRIOR TO CARD
     Route: 048
     Dates: start: 20130927, end: 20131205
  2. KALIUM CHLORATUM [Concomitant]
     Indication: HYPOKALAEMIA
     Route: 048
     Dates: start: 20131024
  3. PLACEBO [Suspect]
     Indication: MALIGNANT MELANOMA
     Dosage: BLINDED DOSE, LAST DOSE PRIOR TO SAE ASYMPTOMATIC REDUCTION OF LVEF17/OCT/2013 AND CARDIAC FAILURE 2
     Route: 048
     Dates: start: 20130927

REACTIONS (7)
  - Cardiac failure [Fatal]
  - Ejection fraction decreased [Not Recovered/Not Resolved]
  - Gamma-glutamyltransferase increased [Recovering/Resolving]
  - Alanine aminotransferase increased [Recovering/Resolving]
  - Aspartate aminotransferase increased [Recovering/Resolving]
  - Blood bilirubin increased [Recovering/Resolving]
  - Blood alkaline phosphatase increased [Recovering/Resolving]
